FAERS Safety Report 23436662 (Version 4)
Quarter: 2024Q2

REPORT INFORMATION
  Report Type: Spontaneous
  Country: JP (occurrence: JP)
  Receive Date: 20240124
  Receipt Date: 20240529
  Transmission Date: 20240716
  Serious: Yes (Death, Other)
  Sender: FDA-Public Use
  Company Number: JP-GENMAB-2024-00104

PATIENT
  Age: 58 Year
  Sex: Female

DRUGS (8)
  1. EPKINLY [Suspect]
     Active Substance: EPCORITAMAB-BYSP
     Indication: Diffuse large B-cell lymphoma refractory
     Dosage: 0.16 MILLIGRAM, SINGLE, CYCLE 1, FIRST ADMINISTRATION
     Route: 065
     Dates: start: 20231227, end: 20231227
  2. EPKINLY [Suspect]
     Active Substance: EPCORITAMAB-BYSP
     Dosage: UNK
     Route: 065
     Dates: start: 20240104, end: 20240104
  3. PREDNISOLONE [Concomitant]
     Active Substance: PREDNISOLONE
     Indication: Prophylaxis
     Dosage: 100 MILLIGRAM, DAY 1, DAY 2, DAY 3 AND DAY 4 OF ADMINISTRATION OF EPKINLY SUBCUTANEOUS INJECTION (EP
     Dates: start: 20231227, end: 20240107
  4. DIPHENHYDRAMINE [Concomitant]
     Active Substance: DIPHENHYDRAMINE
     Indication: Prophylaxis
     Dosage: UNK, DAY 1 OF ADMINISTRATION OF EPKINLY SUBCUTANEOUS INJECTION (EPCORITAMAB) (GENETICAL RECOMBINATIO
     Dates: start: 20231227, end: 20240104
  5. CALONAL [Concomitant]
     Active Substance: ACETAMINOPHEN
     Indication: Prophylaxis
     Dosage: 1000 MILLIGRAM, DAY 1 OF ADMINISTRATION OF EPKINLY SUBCUTANEOUS INJECTION (EPCORITAMAB) (GENETICAL R
     Dates: start: 20231227, end: 20240104
  6. CRESEMBA [Concomitant]
     Active Substance: ISAVUCONAZONIUM SULFATE
     Indication: Sepsis
     Dosage: UNK, BEFORE ADMINISTRATION OF EPKINLY SUBCUTANEOUS INJECTION (EPCORITAMAB) (GENETICAL RECOMBINATION)
  7. MEROPEN DR. EBERTH [Concomitant]
     Indication: Sepsis
     Dosage: UNK, BEFORE ADMINISTRATION OF EPKINLY SUBCUTANEOUS INJECTION (EPCORITAMAB) (GENETICAL RECOMBINATION)
  8. AMBISOME [Concomitant]
     Active Substance: AMPHOTERICIN B
     Indication: Sepsis
     Dosage: UNK, BEFORE ADMINISTRATION OF EPKINLY SUBCUTANEOUS INJECTION (EPCORITAMAB) (GENETICAL RECOMBINATION)

REACTIONS (3)
  - Sepsis [Fatal]
  - Diffuse large B-cell lymphoma refractory [Fatal]
  - Cytokine release syndrome [Recovered/Resolved]

NARRATIVE: CASE EVENT DATE: 20231228
